FAERS Safety Report 23038503 (Version 3)
Quarter: 2025Q2

REPORT INFORMATION
  Report Type: Report from Study
  Country: GB (occurrence: GB)
  Receive Date: 20231006
  Receipt Date: 20250516
  Transmission Date: 20250717
  Serious: No
  Sender: TAKEDA
  Company Number: GB-TAKEDA-2023TUS054930

PATIENT
  Sex: Male

DRUGS (2)
  1. VEDOLIZUMAB [Suspect]
     Active Substance: VEDOLIZUMAB
     Indication: Crohn^s disease
     Dosage: 108 MILLIGRAM, Q2WEEKS
     Dates: start: 20230404
  2. VEDOLIZUMAB [Suspect]
     Active Substance: VEDOLIZUMAB

REACTIONS (7)
  - Confusional state [Unknown]
  - Drug effect less than expected [Unknown]
  - Gait disturbance [Unknown]
  - Blood magnesium decreased [Unknown]
  - Malaise [Unknown]
  - Blood potassium decreased [Unknown]
  - Incorrect dose administered [Unknown]
